FAERS Safety Report 4888936-9 (Version None)
Quarter: 2005Q4

REPORT INFORMATION
  Report Type: 
  Country: None (occurrence: None)
  Receive Date: 20051216
  Receipt Date: 20050720
  Transmission Date: 20060501
  Serious: No
  Sender: FDA-Public Use
  Company Number: USA0507103296

PATIENT
  Age: 73 Year
  Sex: Male

DRUGS (3)
  1. CIALIS [Suspect]
     Dosage: 5 MG
  2. COUMADIN [Concomitant]
  3. ZOCOR [Concomitant]

REACTIONS (1)
  - THERAPEUTIC RESPONSE DECREASED [None]
